FAERS Safety Report 20642937 (Version 1)
Quarter: 2022Q1

REPORT INFORMATION
  Report Type: Spontaneous
  Country: US (occurrence: None)
  Receive Date: 20220325
  Receipt Date: 20220325
  Transmission Date: 20220423
  Serious: Yes (Hospitalization)
  Sender: FDA-Public Use
  Company Number: None

PATIENT
  Sex: Male

DRUGS (6)
  1. CIMZIA [Suspect]
     Active Substance: CERTOLIZUMAB PEGOL
     Indication: Psoriasis
     Dosage: OTHER QUANTITY : 2 X 200 MG/ML;?FREQUENCY : MONTHLY;?
     Route: 058
     Dates: start: 20210417
  2. ASPIRIN TAB [Concomitant]
  3. HYDROXYZINE POW HCL [Concomitant]
  4. TERAZOSIN CAP [Concomitant]
  5. VITAMIN C CHW [Concomitant]
  6. VITAMIN D3 [Concomitant]
     Active Substance: CHOLECALCIFEROL

REACTIONS (2)
  - Hernia repair [None]
  - Therapy interrupted [None]
